FAERS Safety Report 8074249-3 (Version None)
Quarter: 2012Q1

REPORT INFORMATION
  Report Type: 
  Country: None (occurrence: None)
  Receive Date: 20120126
  Receipt Date: 20120118
  Transmission Date: 20120608
  Serious: Yes (Other)
  Sender: FDA-Public Use
  Company Number: US-PURDUE-USA-2012-0081051

PATIENT
  Age: 25 Year
  Sex: Male

DRUGS (1)
  1. OXYCONTIN [Suspect]
     Indication: DRUG ABUSE

REACTIONS (11)
  - PALPITATIONS [None]
  - HYPERHIDROSIS [None]
  - DRUG DEPENDENCE [None]
  - PRURITUS [None]
  - UNEVALUABLE EVENT [None]
  - DRUG ABUSE [None]
  - BONE PAIN [None]
  - NAUSEA [None]
  - DRUG WITHDRAWAL SYNDROME [None]
  - HIV TEST POSITIVE [None]
  - SUICIDAL IDEATION [None]
